FAERS Safety Report 5927532-9 (Version None)
Quarter: 2008Q4

REPORT INFORMATION
  Report Type: 
  Country: None (occurrence: None)
  Receive Date: 20081021
  Receipt Date: 20081021
  Transmission Date: 20090506
  Serious: Yes (Disabling)
  Sender: FDA-Public Use
  Company Number: None

PATIENT
  Age: 11 Year
  Sex: Female
  Weight: 45.3597 kg

DRUGS (3)
  1. REMICADE [Suspect]
     Indication: JUVENILE ARTHRITIS
     Dosage: 200MG ONCE IV DRIP
     Route: 041
     Dates: start: 20081017, end: 20081017
  2. LMX-4 -LIDOCAINE- [Concomitant]
  3. SOLU-MEDROL [Concomitant]

REACTIONS (1)
  - DYSPNOEA [None]
